FAERS Safety Report 5588467-7 (Version None)
Quarter: 2008Q1

REPORT INFORMATION
  Report Type: 
  Country: None (occurrence: None)
  Receive Date: 20080111
  Receipt Date: 20071231
  Transmission Date: 20080703
  Serious: Yes (Death)
  Sender: FDA-Public Use
  Company Number: US-MERCK-0801USA00163

PATIENT
  Age: 28 Year
  Sex: Female

DRUGS (8)
  1. TIAMATE [Suspect]
     Route: 048
  2. BUPROPION HYDROCHLORIDE [Suspect]
     Route: 048
  3. QUETIAPINE FUMARATE [Suspect]
     Route: 048
  4. CLONIDINE [Suspect]
     Route: 048
  5. ZIPRASIDONE HYDROCHLORIDE [Suspect]
     Route: 048
  6. GABAPENTIN [Suspect]
     Route: 048
  7. TIZANIDINE HYDROCHLORIDE [Suspect]
     Route: 048
  8. DULOXETINE HYDROCHLORIDE [Suspect]
     Route: 048

REACTIONS (2)
  - COMPLETED SUICIDE [None]
  - OVERDOSE [None]
